FAERS Safety Report 4478119-9 (Version None)
Quarter: 2004Q4

REPORT INFORMATION
  Report Type: 
  Country: None (occurrence: None)
  Receive Date: 20041018
  Receipt Date: 20041018
  Transmission Date: 20050328
  Serious: Yes (Life-Threatening, Hospitalization)
  Sender: FDA-Public Use
  Company Number: None

PATIENT
  Weight: 28.6 kg

DRUGS (1)
  1. DOCETAXEL  1 MG/ M2/ MIN X 60 MIN [Suspect]
     Indication: ADULT T-CELL LYMPHOMA/LEUKAEMIA REFRACTORY
     Dosage: 60 MG DAY ON 3 DATES INTRAVENOUS
     Route: 042
     Dates: start: 20040922, end: 20041006

REACTIONS (2)
  - OXYGEN SATURATION ABNORMAL [None]
  - SHOCK [None]
